FAERS Safety Report 5911037-5 (Version None)
Quarter: 2008Q4

REPORT INFORMATION
  Report Type: 
  Country: None (occurrence: None)
  Receive Date: 20081007
  Receipt Date: 20081001
  Transmission Date: 20090506
  Serious: Yes (Other)
  Sender: FDA-Public Use
  Company Number: DE-ALLERGAN-0812414US

PATIENT
  Sex: Male

DRUGS (2)
  1. GANFORT [Suspect]
     Indication: GLAUCOMA
     Route: 047
  2. GANFORT [Suspect]
     Route: 047

REACTIONS (1)
  - INTRAOCULAR PRESSURE INCREASED [None]
